FAERS Safety Report 18694115 (Version 1)
Quarter: 2021Q1

REPORT INFORMATION
  Report Type: Spontaneous
  Country: IT (occurrence: IT)
  Receive Date: 20210104
  Receipt Date: 20210104
  Transmission Date: 20210419
  Serious: Yes (Other)
  Sender: FDA-Public Use
  Company Number: IT-SUN PHARMACEUTICAL INDUSTRIES LTD-2020R1-273875

PATIENT
  Age: 14 Year
  Sex: Female

DRUGS (14)
  1. DEXAMETHASONE. [Suspect]
     Active Substance: DEXAMETHASONE
     Indication: CHEMOTHERAPY
     Dosage: 5 MILLIGRAM/SQ. METER, DAILY
     Route: 065
  2. ETOPOSIDE. [Suspect]
     Active Substance: ETOPOSIDE
     Indication: CHEMOTHERAPY
     Dosage: 75 MILLIGRAM/SQ. METER, QD
     Route: 065
  3. CYTARABINE. [Suspect]
     Active Substance: CYTARABINE
     Indication: CHEMOTHERAPY
     Dosage: 100 MILLIGRAM/SQ. METER
     Route: 065
  4. CYCLOPHOSPHAMIDE. [Suspect]
     Active Substance: CYCLOPHOSPHAMIDE
     Indication: CHEMOTHERAPY
     Dosage: 200 MILLIGRAM/SQ. METER, QD
     Route: 065
  5. CYCLOPHOSPHAMIDE. [Suspect]
     Active Substance: CYCLOPHOSPHAMIDE
     Dosage: 200 MILLIGRAM/SQ. METER, QD
     Route: 065
  6. METHOTREXATE. [Suspect]
     Active Substance: METHOTREXATE
     Indication: CHEMOTHERAPY
     Dosage: 500 MILLIGRAM/SQ. METER
     Route: 065
  7. ETOPOSIDE. [Suspect]
     Active Substance: ETOPOSIDE
     Dosage: 100 MILLIGRAM/SQ. METER, QD
     Route: 065
  8. IFOSFAMIDE. [Suspect]
     Active Substance: IFOSFAMIDE
     Dosage: 400 MILLIGRAM/SQ. METER, QD
     Route: 065
  9. IFOSFAMIDE. [Suspect]
     Active Substance: IFOSFAMIDE
     Indication: CHEMOTHERAPY
     Dosage: 300 MILLIGRAM/SQ. METER
     Route: 065
  10. CALCIUM LEVOFOLINATE [Suspect]
     Active Substance: LEVOLEUCOVORIN CALCIUM
     Indication: CHEMOTHERAPY
     Dosage: 7.5 MILLIGRAM/SQ. METER, QID
     Route: 065
  11. VINCRISTINE [Suspect]
     Active Substance: VINCRISTINE
     Indication: CHEMOTHERAPY
     Dosage: 1 MILLIGRAM/SQ. METER, QD
     Route: 065
  12. CYTARABINE. [Suspect]
     Active Substance: CYTARABINE
     Dosage: 150 MILLIGRAM/SQ. METER, BID
     Route: 065
  13. VINDESINE [Suspect]
     Active Substance: VINDESINE
     Indication: CHEMOTHERAPY
     Dosage: 3 MILLIGRAM/SQ. METER, QD
     Route: 065
  14. DAUNORUBICIN [Suspect]
     Active Substance: DAUNORUBICIN
     Indication: CHEMOTHERAPY
     Dosage: 25 MILLIGRAM/SQ. METER, QD
     Route: 065

REACTIONS (5)
  - Pyrexia [Unknown]
  - Anaemia [Unknown]
  - Thrombocytopenia [Unknown]
  - Neutropenia [Unknown]
  - Mucosal inflammation [Unknown]
